FAERS Safety Report 6222871-9 (Version None)
Quarter: 2009Q2

REPORT INFORMATION
  Report Type: 
  Country: None (occurrence: None)
  Receive Date: 20090611
  Receipt Date: 20090608
  Transmission Date: 20091009
  Serious: Yes (Death, Hospitalization)
  Sender: FDA-Public Use
  Company Number: AU-BRISTOL-MYERS SQUIBB COMPANY-14653158

PATIENT
  Age: 61 Year
  Sex: Female

DRUGS (6)
  1. METFORMIN HCL [Suspect]
  2. GLICLAZIDE [Suspect]
  3. FRUSEMIDE [Suspect]
  4. QUINAPRIL [Suspect]
  5. CANDESARTAN [Suspect]
  6. HYDROCHLOROTHIAZIDE [Suspect]

REACTIONS (3)
  - LACTIC ACIDOSIS [None]
  - RENAL FAILURE ACUTE [None]
  - SHOCK [None]
